FAERS Safety Report 24322832 (Version 1)
Quarter: 2024Q3

REPORT INFORMATION
  Report Type: Spontaneous
  Country: AU (occurrence: None)
  Receive Date: 20240916
  Receipt Date: 20240916
  Transmission Date: 20241016
  Serious: Yes (Other)
  Sender: ORION
  Company Number: AU-PFIZER INC-PV202400119658

PATIENT
  Age: 40 Year
  Sex: Male
  Weight: 95 kg

DRUGS (2)
  1. METHOTREXATE [Suspect]
     Active Substance: METHOTREXATE
     Indication: Product used for unknown indication
  2. PREDNISOLONE [Suspect]
     Active Substance: PREDNISOLONE
     Indication: Product used for unknown indication

REACTIONS (3)
  - Sarcoidosis [Unknown]
  - Atrioventricular block complete [Unknown]
  - Troponin increased [Unknown]

NARRATIVE: CASE EVENT DATE: 20240901
